FAERS Safety Report 4834882-6 (Version None)
Quarter: 2005Q4

REPORT INFORMATION
  Report Type: 
  Country: None (occurrence: None)
  Receive Date: 20051115
  Receipt Date: 20051028
  Transmission Date: 20060501
  Serious: Yes (Other)
  Sender: FDA-Public Use
  Company Number: DSA_26827_2005

PATIENT
  Age: 56 Year
  Sex: Female
  Weight: 63.5036 kg

DRUGS (3)
  1. CARDIZEM CD [Suspect]
     Indication: BLOOD PRESSURE
     Dosage: 360 MG QD PO
     Route: 048
     Dates: start: 20050513
  2. PROTONIX [Concomitant]
  3. DIOVAN [Concomitant]

REACTIONS (1)
  - UNEVALUABLE EVENT [None]
